FAERS Safety Report 5598230-9 (Version None)
Quarter: 2008Q1

REPORT INFORMATION
  Report Type: 
  Country: None (occurrence: None)
  Receive Date: 20080122
  Receipt Date: 20080110
  Transmission Date: 20080703
  Serious: Yes (Other)
  Sender: FDA-Public Use
  Company Number: FR-WYE-H02135108

PATIENT
  Sex: Female

DRUGS (9)
  1. EUPANTOL [Suspect]
     Route: 042
     Dates: start: 20071130, end: 20071206
  2. CORDARONE [Suspect]
     Indication: ARRHYTHMIA
     Dosage: 200MG FREQUENCY NOT SPECIFIED
     Route: 048
     Dates: start: 20071205, end: 20071206
  3. ORACILLINE [Suspect]
     Dosage: UNKNOWN
     Route: 042
     Dates: start: 20071203, end: 20071206
  4. ALBUMIN (HUMAN) [Concomitant]
     Dosage: DOSE FORM AND FREQUENCY NOT SPECIFIED
     Route: 065
     Dates: start: 20071130, end: 20071204
  5. SUFENTANIL CITRATE [Suspect]
     Indication: SEDATION
     Dosage: DOSE, FORM AND FREQUENCY NOT SPECIFIED
     Route: 042
     Dates: start: 20071130, end: 20071206
  6. TAVANIC [Concomitant]
     Dosage: DOSE, FORM AND FREQUENCY NOT SPECIFIED
     Route: 065
     Dates: start: 20071201, end: 20071202
  7. VANCOMYCIN [Concomitant]
     Dosage: DOSE, FORM AND FREQUENCY NOT SPECIFIED01
     Route: 065
     Dates: start: 20071201, end: 20071202
  8. CORDARONE [Suspect]
     Dosage: ^DAILY DOSE 7 DF^
     Route: 042
     Dates: start: 20071204, end: 20071205
  9. MIDAZOLAM HCL [Suspect]
     Indication: SEDATION
     Dosage: DOSE, FORM AND FREQUENCY NOT SPECIFIED
     Route: 042
     Dates: start: 20071130, end: 20071206

REACTIONS (3)
  - CHOLESTASIS [None]
  - CYTOLYTIC HEPATITIS [None]
  - SPLENIC INFARCTION [None]
